FAERS Safety Report 6613420-1 (Version None)
Quarter: 2010Q1

REPORT INFORMATION
  Report Type: 
  Country: None (occurrence: None)
  Receive Date: 20100224
  Receipt Date: 20090626
  Transmission Date: 20100710
  Serious: Yes (Other)
  Sender: FDA-Public Use
  Company Number: WAES 0907USA00151

PATIENT
  Sex: Male

DRUGS (1)
  1. ZOCOR [Suspect]
     Dosage: 80 MG/PO
     Route: 048

REACTIONS (2)
  - MALAISE [None]
  - RHABDOMYOLYSIS [None]
